FAERS Safety Report 6265417-1 (Version None)
Quarter: 2009Q3

REPORT INFORMATION
  Report Type: 
  Country: None (occurrence: None)
  Receive Date: 20090709
  Receipt Date: 20090625
  Transmission Date: 20100115
  Serious: Yes (Hospitalization)
  Sender: FDA-Public Use
  Company Number: 2009231890

PATIENT
  Age: 58 Year
  Sex: Male

DRUGS (3)
  1. DALTEPARIN SODIUM [Suspect]
     Indication: LUNG NEOPLASM MALIGNANT
     Dosage: UNK
     Dates: start: 20090514
  2. CISPLATIN [Concomitant]
  3. GEMCITABINE [Concomitant]

REACTIONS (4)
  - HAEMOGLOBIN DECREASED [None]
  - INFECTION [None]
  - LOWER RESPIRATORY TRACT INFECTION [None]
  - PLATELET COUNT DECREASED [None]
